FAERS Safety Report 8106017 (Version 2)
Quarter: 2013Q4

REPORT INFORMATION
  Report Type: Spontaneous
  Country: US (occurrence: US)
  Receive Date: 20110825
  Receipt Date: 20131202
  Transmission Date: 20140711
  Serious: Yes (Hospitalization, Other)
  Sender: FDA-Public Use
  Company Number: US-BAYER-2011-075530

PATIENT
  Sex: Female

DRUGS (9)
  1. YAZ [Suspect]
  2. YASMIN [Suspect]
  3. KCL [Concomitant]
     Route: 042
  4. FIORICET [Concomitant]
     Dosage: PRN
  5. MIDRIN [Concomitant]
     Dosage: PRN
  6. NEXIUM [Concomitant]
     Dosage: 40 MG, BID
  7. ZOLOFT [Concomitant]
     Dosage: 200 MG, UNK
  8. CARAFATE [Concomitant]
     Dosage: 10 ML, QID
  9. POTASSIUM [Concomitant]
     Dosage: 10 MEQ 3 TIMES PER DAY

REACTIONS (2)
  - Gallbladder injury [None]
  - Cholelithiasis [None]
